FAERS Safety Report 21470358 (Version 1)
Quarter: 2022Q4

REPORT INFORMATION
  Report Type: Spontaneous
  Country: FR (occurrence: FR)
  Receive Date: 20221018
  Receipt Date: 20221018
  Transmission Date: 20230112
  Serious: Yes (Hospitalization, Other)
  Sender: FDA-Public Use
  Company Number: FR-GLAXOSMITHKLINE-FR2022GSK146624

PATIENT

DRUGS (1)
  1. LAMOTRIGINE [Suspect]
     Active Substance: LAMOTRIGINE
     Indication: Product used for unknown indication
     Dosage: UNK

REACTIONS (17)
  - Toxic epidermal necrolysis [Recovered/Resolved]
  - Pulmonary embolism [Unknown]
  - Acute motor-sensory axonal neuropathy [Recovering/Resolving]
  - Muscular weakness [Recovering/Resolving]
  - Paralysis [Not Recovered/Not Resolved]
  - Facial paralysis [Not Recovered/Not Resolved]
  - Central nervous system injury [Unknown]
  - Septic shock [Unknown]
  - Pneumonia [Unknown]
  - Somnolence [Unknown]
  - Dysarthria [Unknown]
  - Executive dysfunction [Recovering/Resolving]
  - Loss of consciousness [Recovered/Resolved]
  - Aphasia [Recovered/Resolved]
  - Dysphagia [Recovered/Resolved]
  - Central nervous system lesion [Unknown]
  - Sepsis [Unknown]
